FAERS Safety Report 23847158 (Version 1)
Quarter: 2024Q2

REPORT INFORMATION
  Report Type: Other
  Country: JP (occurrence: JP)
  Receive Date: 20240513
  Receipt Date: 20240513
  Transmission Date: 20240715
  Serious: Yes (Hospitalization)
  Sender: FDA-Public Use
  Company Number: JP-DEXPHARM-2024-1195

PATIENT
  Age: 22 Year
  Sex: Male

DRUGS (1)
  1. ALCOHOL\CHLORHEXIDINE GLUCONATE [Suspect]
     Active Substance: ALCOHOL\CHLORHEXIDINE GLUCONATE
     Indication: Infection prophylaxis

REACTIONS (6)
  - Conjunctival hyperaemia [Recovering/Resolving]
  - Corneal oedema [Recovering/Resolving]
  - Corneal erosion [Recovering/Resolving]
  - Conjunctival hyperaemia [Recovering/Resolving]
  - Corneal endothelial cell loss [Recovering/Resolving]
  - Visual acuity reduced [Recovering/Resolving]
